FAERS Safety Report 9305483 (Version 1)
Quarter: 2013Q2

REPORT INFORMATION
  Report Type: Spontaneous
  Country: US (occurrence: US)
  Receive Date: 20130523
  Receipt Date: 20130523
  Transmission Date: 20140414
  Serious: No
  Sender: FDA-Public Use
  Company Number: US-009507513-1305USA013255

PATIENT
  Age: 65 Year
  Sex: Male

DRUGS (1)
  1. PEG-INTRON [Suspect]
     Dosage: UNK
     Dates: start: 20130521

REACTIONS (1)
  - Myalgia [Unknown]
